FAERS Safety Report 5685965-2 (Version None)
Quarter: 2008Q1

REPORT INFORMATION
  Report Type: 
  Country: None (occurrence: None)
  Receive Date: 20080328
  Receipt Date: 20070905
  Transmission Date: 20080703
  Serious: No
  Sender: FDA-Public Use
  Company Number: US-BAYER-US-2007-033962

PATIENT
  Age: 36 Year
  Sex: Female
  Weight: 95 kg

DRUGS (4)
  1. MIRENA [Suspect]
     Indication: CONTRACEPTION
     Route: 015
     Dates: start: 20070709
  2. HYZAAR [Concomitant]
     Indication: BLOOD PRESSURE
  3. VERAPAMIL [Concomitant]
     Indication: MIGRAINE
  4. WELLBUTRIN [Concomitant]
     Indication: DEPRESSION

REACTIONS (1)
  - MENORRHAGIA [None]
